FAERS Safety Report 20751473 (Version 1)
Quarter: 2022Q2

REPORT INFORMATION
  Report Type: Spontaneous
  Country: US (occurrence: None)
  Receive Date: 20220426
  Receipt Date: 20220426
  Transmission Date: 20220720
  Serious: No
  Sender: FDA-Public Use
  Company Number: None

PATIENT
  Age: 43 Year
  Sex: Female

DRUGS (1)
  1. OTEZLA [Suspect]
     Active Substance: APREMILAST
     Indication: Lichen planopilaris
     Dosage: FREQUENCY : TWICE A DAY;?
     Route: 048
     Dates: start: 202202

REACTIONS (2)
  - Lower limb fracture [None]
  - Therapy interrupted [None]
